FAERS Safety Report 11144962 (Version 1)
Quarter: 2015Q2

REPORT INFORMATION
  Report Type: Spontaneous
  Country: US (occurrence: None)
  Receive Date: 20150526
  Receipt Date: 20150526
  Transmission Date: 20150821
  Serious: Yes (Hospitalization, Other)
  Sender: FDA-Public Use
  Company Number: ADR-2015-01009

PATIENT
  Age: 57 Year
  Sex: Female

DRUGS (8)
  1. BACLOFEN. [Suspect]
     Active Substance: BACLOFEN
     Indication: MUSCLE SPASMS
  2. INSULIN ASPART [Concomitant]
     Active Substance: INSULIN ASPART
  3. INSULIN GLARGINE [Concomitant]
     Active Substance: INSULIN GLARGINE
  4. GABAPENTIN. [Concomitant]
     Active Substance: GABAPENTIN
  5. ASPIRIN. [Concomitant]
     Active Substance: ASPIRIN
  6. METHIMAZOLE. [Concomitant]
     Active Substance: METHIMAZOLE
  7. METOPROLOL [Concomitant]
     Active Substance: METOPROLOL
  8. SIMVASTATIN. [Concomitant]
     Active Substance: SIMVASTATIN

REACTIONS (6)
  - Confusional state [None]
  - Hypotonia [None]
  - Mental status changes [None]
  - Disturbance in attention [None]
  - Consciousness fluctuating [None]
  - Toxicity to various agents [None]

NARRATIVE: CASE EVENT DATE: 20150420
